FAERS Safety Report 8072359-8 (Version None)
Quarter: 2012Q1

REPORT INFORMATION
  Report Type: 
  Country: None (occurrence: None)
  Receive Date: 20120126
  Receipt Date: 20120116
  Transmission Date: 20120608
  Serious: Yes (Hospitalization)
  Sender: FDA-Public Use
  Company Number: GB-UCBSA-049932

PATIENT
  Age: 57 Year
  Sex: Female
  Weight: 101 kg

DRUGS (9)
  1. CERTOLIZUMAB [Suspect]
     Indication: RHEUMATOID ARTHRITIS
     Route: 058
     Dates: start: 20110203, end: 20110414
  2. METHOTREXATE [Concomitant]
     Indication: RHEUMATOID ARTHRITIS
     Dates: end: 20110401
  3. STEROID [Concomitant]
  4. ADCAL D3 [Concomitant]
     Dosage: 2 TABLETS EACH MORNING
     Route: 048
  5. ACETAMINOPHEN [Concomitant]
     Indication: PYREXIA
     Dosage: PRN, (MAX 4 G DAILY)
     Route: 048
  6. FOLIC ACID [Concomitant]
     Dosage: (TUE/THURS/SAT) IN THE MORNING
     Route: 048
  7. RAMIPRIL [Concomitant]
     Dosage: MORNING
     Route: 048
  8. STEROID [Concomitant]
     Dosage: REDUCED DOSE
  9. ACETAMINOPHEN [Concomitant]
     Indication: PAIN
     Dosage: PRN, (MAX 4 G DAILY)
     Route: 048

REACTIONS (2)
  - LOWER RESPIRATORY TRACT INFECTION [None]
  - INTERSTITIAL LUNG DISEASE [None]
